FAERS Safety Report 10510311 (Version 2)
Quarter: 2014Q4

REPORT INFORMATION
  Report Type: Report from Study
  Country: US (occurrence: US)
  Receive Date: 20141010
  Receipt Date: 20141031
  Transmission Date: 20150528
  Serious: No
  Sender: FDA-Public Use
  Company Number: US-AMGEN-USASL2014076038

PATIENT
  Age: 57 Year
  Sex: Female

DRUGS (1)
  1. ENBREL [Suspect]
     Active Substance: ETANERCEPT
     Indication: RHEUMATOID ARTHRITIS
     Dosage: UNK MG, QWK
     Route: 065

REACTIONS (4)
  - Contusion [Not Recovered/Not Resolved]
  - Injection site rash [Not Recovered/Not Resolved]
  - Swelling [Not Recovered/Not Resolved]
  - Rash erythematous [Not Recovered/Not Resolved]
